FAERS Safety Report 20087514 (Version 1)
Quarter: 2021Q4

REPORT INFORMATION
  Report Type: Spontaneous
  Country: JP (occurrence: JP)
  Receive Date: 20211118
  Receipt Date: 20211118
  Transmission Date: 20220303
  Serious: Yes (Death, Hospitalization, Other)
  Sender: FDA-Public Use
  Company Number: JP-TAKEDA-2021TUS063557

PATIENT
  Age: 75 Year
  Sex: Male

DRUGS (1)
  1. FOSRENOL [Suspect]
     Active Substance: LANTHANUM CARBONATE
     Indication: Hyperphosphataemia
     Dosage: 4 UNK, QD
     Route: 065
     Dates: end: 202109

REACTIONS (6)
  - Disseminated intravascular coagulation [Fatal]
  - Cerebral infarction [Fatal]
  - Condition aggravated [Fatal]
  - Hospitalisation [Unknown]
  - Decreased appetite [Unknown]
  - Product residue present [Unknown]

NARRATIVE: CASE EVENT DATE: 20210301
